FAERS Safety Report 8272547 (Version 2)
Quarter: 2014Q2

REPORT INFORMATION
  Report Type: Report from Study
  Country: US (occurrence: US)
  Receive Date: 20111202
  Receipt Date: 20140423
  Transmission Date: 20141212
  Serious: Yes (Other)
  Sender: FDA-Public Use
  Company Number: US-ROCHE-GNE262601

PATIENT
  Age: 38 Year
  Sex: Female

DRUGS (10)
  1. OMALIZUMAB [Suspect]
     Indication: ASTHMA
     Dosage: 300 MG, UNK
     Route: 065
     Dates: start: 20080416, end: 20080515
  2. OMALIZUMAB [Suspect]
     Dosage: 225 MG, Q2W
     Route: 065
     Dates: start: 20090904, end: 20091023
  3. PRENATAL VITAMINS [Concomitant]
     Indication: PREGNANCY
  4. ZOCOR [Concomitant]
     Indication: BLOOD CHOLESTEROL INCREASED
  5. SINGULAIR [Concomitant]
     Indication: HYPERSENSITIVITY
     Dosage: UNK
     Route: 065
  6. ADVAIR [Concomitant]
     Indication: ASTHMA
     Dosage: UNK
     Route: 065
  7. ALBUTEROL [Concomitant]
     Indication: ASTHMA
     Dosage: UNK
     Route: 065
  8. PROVENTIL [Concomitant]
     Indication: ASTHMA
     Dosage: UNK
     Route: 065
  9. CRESTOR [Concomitant]
     Indication: HYPERCHOLESTEROLAEMIA
     Dosage: UNK
     Route: 065
  10. CONCOMITANT DRUG [Concomitant]
     Indication: HYPERTENSION
     Dosage: UNK
     Route: 065

REACTIONS (2)
  - Pre-eclampsia [Recovered/Resolved]
  - Exposure during pregnancy [Unknown]
